FAERS Safety Report 7762899-0 (Version None)
Quarter: 2011Q3

REPORT INFORMATION
  Report Type: 
  Country: None (occurrence: None)
  Receive Date: 20110920
  Receipt Date: 20110912
  Transmission Date: 20111222
  Serious: Yes (Other)
  Sender: FDA-Public Use
  Company Number: CHPA2011JP12431

PATIENT
  Age: 68 Year
  Sex: Male

DRUGS (3)
  1. EPADEL [Suspect]
     Indication: HYPERLIPIDAEMIA
     Dosage: 1800 MG, UNK
     Route: 048
  2. PURSENNID [Suspect]
     Indication: CONSTIPATION
     Dosage: 24 MG, QD
     Route: 048
  3. DEPAS [Suspect]
     Dosage: 1.5 MG, QD
     Route: 048

REACTIONS (2)
  - HYPERLIPIDAEMIA [None]
  - HYPERPROLACTINAEMIA [None]
